FAERS Safety Report 23948519 (Version 4)
Quarter: 2025Q1

REPORT INFORMATION
  Report Type: Spontaneous
  Country: PT (occurrence: PT)
  Receive Date: 20240607
  Receipt Date: 20250211
  Transmission Date: 20250409
  Serious: Yes (Other)
  Sender: AUROBINDO
  Company Number: PT-PHARMALEX-2024000504

PATIENT
  Age: 35 Year
  Sex: Female

DRUGS (5)
  1. TRAMADOL [Suspect]
     Active Substance: TRAMADOL
     Indication: Neuralgia
     Route: 065
  2. TRAMADOL [Suspect]
     Active Substance: TRAMADOL
     Indication: Phantom limb syndrome
  3. GABAPENTIN [Suspect]
     Active Substance: GABAPENTIN
     Indication: Neuralgia
     Route: 065
  4. DEXKETOPROFEN [Suspect]
     Active Substance: DEXKETOPROFEN
     Indication: Neuralgia
     Route: 065
  5. DEXKETOPROFEN [Suspect]
     Active Substance: DEXKETOPROFEN
     Indication: Phantom limb syndrome

REACTIONS (2)
  - Drug-induced liver injury [Unknown]
  - Drug intolerance [Unknown]
